FAERS Safety Report 8923716 (Version 1)
Quarter: 2012Q4

REPORT INFORMATION
  Report Type: Spontaneous
  Country: ES (occurrence: None)
  Receive Date: 20121115
  Receipt Date: 20121115
  Transmission Date: 20130627
  Serious: Yes (Hospitalization)
  Sender: FDA-Public Use
  Company Number: IMP_06060_2012

PATIENT
  Age: 65 Year
  Sex: Male

DRUGS (5)
  1. OMEPRAZOLE [Suspect]
     Indication: GASTROOESOPHAGEAL REFLUX DISEASE
     Dosage: (DF)
  2. DOXAZOSIN [Concomitant]
  3. VALSARTAN/HYDROCHLOROTHIAZIDE [Concomitant]
  4. LEVETIRACETAM [Concomitant]
  5. WARFARIN [Concomitant]

REACTIONS (4)
  - Grand mal convulsion [None]
  - Blood calcium decreased [None]
  - Hypomagnesaemia [None]
  - Blood potassium decreased [None]
